FAERS Safety Report 14299339 (Version 3)
Quarter: 2018Q1

REPORT INFORMATION
  Report Type: Report from Study
  Country: None (occurrence: BR)
  Receive Date: 20171219
  Receipt Date: 20180212
  Transmission Date: 20180509
  Serious: Yes (Hospitalization, Other)
  Sender: FDA-Public Use
  Company Number: BR-ABBVIE-17K-020-2194292-00

PATIENT
  Age: 48 Year
  Sex: Female
  Weight: 72 kg

DRUGS (6)
  1. METHOTREXATE. [Concomitant]
     Active Substance: METHOTREXATE
     Indication: ARTHRITIS
  2. LEVOID [Concomitant]
     Active Substance: LEVOTHYROXINE
     Indication: THYROID DISORDER
  3. HUMIRA [Suspect]
     Active Substance: ADALIMUMAB
     Indication: RHEUMATOID ARTHRITIS
     Route: 058
     Dates: start: 20160101
  4. HUMIRA [Suspect]
     Active Substance: ADALIMUMAB
     Route: 058
  5. FOLIC ACID. [Concomitant]
     Active Substance: FOLIC ACID
     Indication: ARTHRITIS
  6. SERETIDE [Concomitant]
     Active Substance: FLUTICASONE PROPIONATE\SALMETEROL XINAFOATE
     Indication: ASTHMA

REACTIONS (8)
  - Glaucoma [Recovering/Resolving]
  - Pulmonary calcification [Unknown]
  - Hypotension [Recovered/Resolved]
  - Back pain [Recovering/Resolving]
  - Hypertension [Recovered/Resolved]
  - Dyspnoea [Unknown]
  - Rheumatoid arthritis [Recovering/Resolving]
  - Pulmonary mass [Unknown]

NARRATIVE: CASE EVENT DATE: 201706
